FAERS Safety Report 4307407-1 (Version None)
Quarter: 2004Q1

REPORT INFORMATION
  Report Type: 
  Country: None (occurrence: None)
  Receive Date: 20040226
  Receipt Date: 20040216
  Transmission Date: 20041129
  Serious: Yes (Death)
  Sender: FDA-Public Use
  Company Number: US-JNJFOC-20040203380

PATIENT
  Age: 51 Year
  Sex: Female
  Weight: 45.8133 kg

DRUGS (1)
  1. REMICADE [Suspect]
     Indication: SARCOIDOSIS
     Dosage: 10.86 MG/KG, INTRAVENOUS
     Route: 042

REACTIONS (1)
  - DEATH [None]
